FAERS Safety Report 9066609 (Version 1)
Quarter: 2013Q1

REPORT INFORMATION
  Report Type: Spontaneous
  Country: US (occurrence: US)
  Receive Date: 20130214
  Receipt Date: 20130214
  Transmission Date: 20140127
  Serious: Yes (Hospitalization, Other)
  Sender: FDA-Public Use
  Company Number: US-009507513-0908USA01671

PATIENT
  Age: 26 Year
  Sex: Female

DRUGS (3)
  1. SINGULAIR [Suspect]
     Route: 048
  2. FLUTICASONE [Suspect]
     Dosage: UNK
  3. KETEK [Suspect]
     Indication: SINUSITIS
     Dosage: 800 MG, ONCE
     Route: 048
     Dates: start: 200601, end: 200601

REACTIONS (35)
  - Hepatic failure [Unknown]
  - Vomiting [Unknown]
  - Vocal cord paresis [Unknown]
  - Vocal cord disorder [Unknown]
  - Urinary tract infection [Unknown]
  - Unresponsive to stimuli [Unknown]
  - Transaminases increased [Unknown]
  - Pyrexia [Unknown]
  - Pneumonia [Unknown]
  - Oral candidiasis [Unknown]
  - Nausea [Unknown]
  - Muscle disorder [Unknown]
  - Metabolic disorder [Unknown]
  - Mental status changes [Unknown]
  - Lethargy [Unknown]
  - Jaundice [Unknown]
  - International normalised ratio abnormal [Unknown]
  - Hypoaesthesia [Unknown]
  - Hyperhidrosis [Unknown]
  - Ammonia abnormal [Unknown]
  - Brain oedema [Unknown]
  - Coagulopathy [Unknown]
  - Convulsion [Unknown]
  - Deep vein thrombosis [Unknown]
  - Eye disorder [Unknown]
  - Cerebral infarction [Unknown]
  - Diplopia [Unknown]
  - Dysphagia [Unknown]
  - Fatigue [Unknown]
  - Haemorrhage intracranial [Unknown]
  - Asthenia [Unknown]
  - Hemiparesis [Unknown]
  - Hepatic encephalopathy [Unknown]
  - Aphasia [Unknown]
  - Hepatitis [Unknown]
